FAERS Safety Report 17784987 (Version 1)
Quarter: 2020Q2

REPORT INFORMATION
  Report Type: Spontaneous
  Country: FR (occurrence: FR)
  Receive Date: 20200514
  Receipt Date: 20200514
  Transmission Date: 20200714
  Serious: Yes (Hospitalization)
  Sender: FDA-Public Use
  Company Number: FR-PFIZER INC-2020191274

PATIENT
  Age: 52 Year
  Sex: Female

DRUGS (3)
  1. LYRICA [Suspect]
     Active Substance: PREGABALIN
     Dosage: UNK
  2. DIAZEPAM. [Suspect]
     Active Substance: DIAZEPAM
     Dosage: UNK
  3. CLONAZEPAM. [Suspect]
     Active Substance: CLONAZEPAM
     Dosage: UNK

REACTIONS (6)
  - Mydriasis [Recovered/Resolved]
  - Drug abuse [Unknown]
  - Pneumonia aspiration [Recovered/Resolved]
  - Housebound [Not Recovered/Not Resolved]
  - Altered state of consciousness [Recovered/Resolved]
  - Hypoxia [Recovered/Resolved]
